FAERS Safety Report 10210143 (Version 2)
Quarter: 2014Q2

REPORT INFORMATION
  Report Type: Report from Study
  Country: CA (occurrence: CA)
  Receive Date: 20140602
  Receipt Date: 20140603
  Transmission Date: 20141212
  Serious: Yes (Other)
  Sender: FDA-Public Use
  Company Number: CA-VERTEX PHARMACEUTICALS INC-2014-002538

PATIENT
  Age: 51 Year
  Sex: Female
  Weight: 91.3 kg

DRUGS (8)
  1. VX-950 (TELAPREVIR) [Suspect]
     Indication: HEPATITIS C
     Dosage: 375 MG, BID
     Route: 048
     Dates: start: 20140430, end: 201405
  2. PEGASYS [Suspect]
     Indication: HEPATITIS C
     Dosage: 180 ?G, UNK
     Route: 065
     Dates: start: 20140430
  3. RIBAVIRIN [Suspect]
     Indication: CHRONIC HEPATITIS C
     Dosage: 1400 MG, UNK
     Route: 065
     Dates: start: 20140430
  4. VICTRELIS [Concomitant]
     Indication: PRODUCT USED FOR UNKNOWN INDICATION
     Route: 065
  5. METFORMIN [Concomitant]
     Indication: DIABETES MELLITUS
     Route: 065
  6. HYDROCHLOROTHIAZIDE [Concomitant]
     Indication: CARDIAC DISORDER
     Route: 065
  7. METHADONE [Concomitant]
     Indication: PRODUCT USED FOR UNKNOWN INDICATION
     Route: 065
  8. RAMIPRIL [Concomitant]
     Indication: CARDIAC DISORDER
     Route: 065

REACTIONS (1)
  - Rash pruritic [Recovering/Resolving]
